FAERS Safety Report 9215168 (Version 1)
Quarter: 2013Q2

REPORT INFORMATION
  Report Type: Spontaneous
  Country: US (occurrence: US)
  Receive Date: 20130405
  Receipt Date: 20130405
  Transmission Date: 20140414
  Serious: Yes (Other)
  Sender: FDA-Public Use
  Company Number: US-ASTRAZENECA-2013SE20515

PATIENT
  Age: 85 Year
  Sex: Male

DRUGS (6)
  1. SYMBICORT [Suspect]
     Indication: CHRONIC OBSTRUCTIVE PULMONARY DISEASE
     Dosage: 160/4.5 ONE PUFF BID
     Route: 055
  2. SYMBICORT [Suspect]
     Indication: CHRONIC OBSTRUCTIVE PULMONARY DISEASE
     Dosage: 80/4.5, BID
     Route: 055
  3. OTHER [Suspect]
     Indication: CHRONIC OBSTRUCTIVE PULMONARY DISEASE
     Route: 055
  4. OTHER [Suspect]
     Indication: CHRONIC OBSTRUCTIVE PULMONARY DISEASE
     Route: 055
  5. ADVAIR [Concomitant]
  6. HEART MEDICATIONS [Concomitant]

REACTIONS (5)
  - Overdose [Unknown]
  - Dyspnoea [Unknown]
  - Memory impairment [Unknown]
  - Intentional drug misuse [Unknown]
  - Drug ineffective [Unknown]
